FAERS Safety Report 20473052 (Version 1)
Quarter: 2022Q1

REPORT INFORMATION
  Report Type: Other
  Country: IL (occurrence: None)
  Receive Date: 20220215
  Receipt Date: 20220215
  Transmission Date: 20220423
  Serious: Yes (Other)
  Sender: FDA-Public Use
  Company Number: IL-ROCHE-2872429

PATIENT
  Sex: Male

DRUGS (1)
  1. ALECENSA [Suspect]
     Active Substance: ALECTINIB HYDROCHLORIDE
     Indication: Non-small cell lung cancer
     Route: 048
     Dates: start: 20201016

REACTIONS (7)
  - Pneumonitis [Not Recovered/Not Resolved]
  - Pneumonitis [Recovering/Resolving]
  - Osteoporosis [Unknown]
  - Neuropathy peripheral [Unknown]
  - Nasopharyngitis [Recovering/Resolving]
  - Cough [Recovering/Resolving]
  - Neuropathy peripheral [Not Recovered/Not Resolved]
